FAERS Safety Report 7309523-9 (Version None)
Quarter: 2011Q1

REPORT INFORMATION
  Report Type: 
  Country: None (occurrence: None)
  Receive Date: 20110223
  Receipt Date: 20110208
  Transmission Date: 20110831
  Serious: Yes (Other)
  Sender: FDA-Public Use
  Company Number: BR-GENENTECH-311489

PATIENT
  Age: 60 Year
  Sex: Male

DRUGS (1)
  1. LUCENTIS [Suspect]
     Indication: ANGIOPATHY
     Dosage: 10 MG/ML, UNK
     Route: 031

REACTIONS (1)
  - ENDOPHTHALMITIS [None]
